FAERS Safety Report 25634418 (Version 1)
Quarter: 2025Q3

REPORT INFORMATION
  Report Type: Spontaneous
  Country: US (occurrence: US)
  Receive Date: 20250801
  Receipt Date: 20250801
  Transmission Date: 20251021
  Serious: No
  Sender: PURDUE
  Company Number: US-PURDUE PHARMA-USA-2025-0319348

PATIENT
  Age: 78 Year
  Sex: Male

DRUGS (2)
  1. OXYCODONE HYDROCHLORIDE [Suspect]
     Active Substance: OXYCODONE HYDROCHLORIDE
     Indication: Procedural pain
     Route: 065
     Dates: start: 20250617, end: 2025
  2. ENZALUTAMIDE [Suspect]
     Active Substance: ENZALUTAMIDE
     Indication: Prostate cancer
     Dosage: 160.0 MILLIGRAM, DAILY
     Route: 048
     Dates: start: 20200508

REACTIONS (3)
  - Back pain [Recovered/Resolved]
  - Constipation [Recovered/Resolved]
  - Inadequate analgesia [Recovered/Resolved]

NARRATIVE: CASE EVENT DATE: 20250617
